FAERS Safety Report 4439618-9 (Version None)
Quarter: 2004Q3

REPORT INFORMATION
  Report Type: 
  Country: None (occurrence: None)
  Receive Date: 20040901
  Receipt Date: 20040901
  Transmission Date: 20050211
  Serious: Yes (Hospitalization)
  Sender: FDA-Public Use
  Company Number: None

PATIENT
  Sex: Female
  Weight: 48.9885 kg

DRUGS (3)
  1. ROGAINE 5 [Suspect]
     Indication: ALOPECIA
     Dosage: TOPICAL [PRIOR TO ADMISSION]
     Route: 061
  2. BIRTH CONTROL [Concomitant]
  3. MULTIVITAMIN [Concomitant]

REACTIONS (3)
  - ERYTHEMA [None]
  - SWELLING [None]
  - TENDERNESS [None]
